FAERS Safety Report 8304165 (Version 2)
Quarter: 2013Q2

REPORT INFORMATION
  Report Type: Spontaneous
  Country: MX (occurrence: MX)
  Receive Date: 20111221
  Receipt Date: 20130410
  Transmission Date: 20140414
  Serious: Yes (Death, Hospitalization, Other)
  Sender: FDA-Public Use
  Company Number: PHHY2011MX110032

PATIENT
  Age: 45 Year
  Sex: Female

DRUGS (2)
  1. ZOMETA [Suspect]
     Indication: PLASMA CELL MYELOMA
     Dosage: 4 MG/5ML, MONTHLY
     Route: 042
     Dates: start: 201008, end: 201012
  2. EUTIROX [Concomitant]
     Dosage: 5 MG/100 ML, QMO
     Dates: start: 201008, end: 201012

REACTIONS (4)
  - Respiratory arrest [Fatal]
  - Plasma cell myeloma [Unknown]
  - Malignant neoplasm progression [Unknown]
  - Bone pain [Unknown]
